FAERS Safety Report 7154345-5 (Version None)
Quarter: 2010Q4

REPORT INFORMATION
  Report Type: 
  Country: None (occurrence: None)
  Receive Date: 20101213
  Receipt Date: 20101130
  Transmission Date: 20110411
  Serious: Yes (Hospitalization)
  Sender: FDA-Public Use
  Company Number: IT-MYLANLABS-2010S1022276

PATIENT
  Age: 60 Year
  Sex: Male
  Weight: 91 kg

DRUGS (12)
  1. FLUPHENAZINE [Suspect]
     Indication: DEPRESSION
     Route: 048
  2. AMITRIPTYLINE [Suspect]
     Indication: DEPRESSION
     Dosage: 25 + 50MG DAILY
     Route: 048
  3. CISPLATIN [Suspect]
     Indication: SPINDLE CELL SARCOMA
     Dosage: 48-HOUR CONTINUOUS INFUSION ON DAYS 1 AND 2
     Dates: start: 20090219
  4. HYDROCHLOROTHIAZIDE [Suspect]
     Route: 048
  5. BARBEXACLONE [Suspect]
     Dosage: 125 + 100MG DAILY
     Route: 048
  6. PHENYTOIN [Concomitant]
     Indication: EPILEPSY
     Dosage: 100 + 50 + 100MG DAILY
     Route: 048
  7. BACTRIM DS [Concomitant]
     Indication: ANTIBIOTIC PROPHYLAXIS
     Dosage: 1 TABLET TWICE DAILY
     Route: 048
     Dates: start: 20090221
  8. DOXORUBICIN [Concomitant]
     Indication: SPINDLE CELL SARCOMA
     Dosage: ON DAY 3
     Route: 065
     Dates: start: 20090201
  9. CARDIOXANE [Concomitant]
     Indication: HYPERTENSIVE CARDIOMYOPATHY
     Route: 065
  10. RAMIPRIL [Concomitant]
     Route: 048
  11. AMLODIPINE [Concomitant]
     Route: 048
  12. BIPERIDEN HYDROCHLORIDE TAB [Concomitant]
     Route: 048

REACTIONS (7)
  - AUTOMATISM [None]
  - COMA [None]
  - HYPERVENTILATION [None]
  - HYPOKALAEMIA [None]
  - HYPONATRAEMIA [None]
  - INAPPROPRIATE ANTIDIURETIC HORMONE SECRETION [None]
  - RESPIRATORY ALKALOSIS [None]
